FAERS Safety Report 20867129 (Version 1)
Quarter: 2022Q2

REPORT INFORMATION
  Report Type: Spontaneous
  Country: GB (occurrence: GB)
  Receive Date: 20220524
  Receipt Date: 20220524
  Transmission Date: 20220720
  Serious: Yes (Disabling)
  Sender: FDA-Public Use
  Company Number: None

PATIENT
  Age: 66 Year
  Sex: Female

DRUGS (1)
  1. OLANZAPINE [Suspect]
     Active Substance: OLANZAPINE
     Indication: Psychotic disorder
     Dosage: 20 MILLIGRAM, QD
     Route: 048
     Dates: start: 2010, end: 2020

REACTIONS (2)
  - Hypovitaminosis [Not Recovered/Not Resolved]
  - Oral pain [Recovered/Resolved with Sequelae]

NARRATIVE: CASE EVENT DATE: 20100101
